FAERS Safety Report 21694611 (Version 3)
Quarter: 2022Q4

REPORT INFORMATION
  Report Type: Spontaneous
  Country: US (occurrence: US)
  Receive Date: 20221207
  Receipt Date: 20221216
  Transmission Date: 20230112
  Serious: Yes (Other)
  Sender: FDA-Public Use
  Company Number: US-PFIZER INC-202201352580

PATIENT
  Age: 81 Year
  Sex: Male
  Weight: 70.31 kg

DRUGS (5)
  1. PAXLOVID [Interacting]
     Active Substance: NIRMATRELVIR\RITONAVIR
     Indication: COVID-19 treatment
     Dosage: 3 DF
     Route: 048
     Dates: start: 20221128, end: 20221202
  2. COUMADIN [Interacting]
     Active Substance: WARFARIN SODIUM
     Indication: Artificial heart implant
     Dosage: UNK, AS NEEDED (10MG OF COUMADIN ON FRIDAY, 5MG ON SATURDAY AND 5 MG ON SUNDAY)
     Dates: start: 2022
  3. COUMADIN [Interacting]
     Active Substance: WARFARIN SODIUM
     Dosage: UNK (TAKES 5 MG A DAY FOR 5 DAYS AND TWO DAYS CUT BACK TO HALF)
  4. WARFARIN [Interacting]
     Active Substance: WARFARIN
     Dosage: UNK
  5. PLAVIX [Concomitant]
     Active Substance: CLOPIDOGREL BISULFATE
     Indication: Anticoagulant therapy
     Dosage: UNK

REACTIONS (4)
  - Labelled drug-drug interaction issue [Not Recovered/Not Resolved]
  - International normalised ratio decreased [Recovering/Resolving]
  - Drug ineffective [Not Recovered/Not Resolved]
  - Blood iron decreased [Unknown]

NARRATIVE: CASE EVENT DATE: 20220101
